FAERS Safety Report 8111375-4 (Version None)
Quarter: 2012Q1

REPORT INFORMATION
  Report Type: 
  Country: None (occurrence: None)
  Receive Date: 20120203
  Receipt Date: 20111017
  Transmission Date: 20120608
  Serious: No
  Sender: FDA-Public Use
  Company Number: US-GLAXOSMITHKLINE-A0949341A

PATIENT
  Age: 61 Year
  Sex: Female

DRUGS (5)
  1. SOMA [Concomitant]
  2. LAMICTAL [Suspect]
     Indication: ANXIETY
     Dosage: 25MG PER DAY
     Route: 048
     Dates: start: 20111004, end: 20111013
  3. HYDROCODONE BITARTRATE [Concomitant]
  4. CLONOPIN [Concomitant]
  5. PROPRANOLOL [Suspect]
     Indication: PALPITATIONS
     Dosage: 10MG TWICE PER DAY
     Route: 048
     Dates: start: 20111003, end: 20111014

REACTIONS (6)
  - VISION BLURRED [None]
  - PRURITUS [None]
  - HEADACHE [None]
  - DIPLOPIA [None]
  - MALAISE [None]
  - DIZZINESS [None]
